FAERS Safety Report 12088120 (Version 1)
Quarter: 2016Q1

REPORT INFORMATION
  Report Type: Spontaneous
  Country: US (occurrence: None)
  Receive Date: 20160216
  Receipt Date: 20160216
  Transmission Date: 20160526
  Serious: No
  Sender: FDA-Public Use
  Company Number: None

PATIENT
  Age: 57 Year
  Sex: Female
  Weight: 58.97 kg

DRUGS (1)
  1. MIRVASO [Suspect]
     Active Substance: BRIMONIDINE TARTRATE
     Indication: ROSACEA
     Dosage: APPLIED TO A SURFACE, USUALLY THE SKIN
     Dates: start: 20160125, end: 20160203

REACTIONS (3)
  - Intranasal paraesthesia [None]
  - Nasal disorder [None]
  - Erythema [None]

NARRATIVE: CASE EVENT DATE: 20160201
